FAERS Safety Report 8602662-1 (Version None)
Quarter: 2012Q3

REPORT INFORMATION
  Report Type: 
  Country: None (occurrence: None)
  Receive Date: 20120817
  Receipt Date: 20120813
  Transmission Date: 20120928
  Serious: Yes (Hospitalization)
  Sender: FDA-Public Use
  Company Number: US-UCBSA-063651

PATIENT
  Sex: Female

DRUGS (1)
  1. CIMZIA [Suspect]

REACTIONS (2)
  - MIGRAINE [None]
  - DIPLOPIA [None]
